FAERS Safety Report 14072199 (Version 5)
Quarter: 2018Q4

REPORT INFORMATION
  Report Type: Report from Study
  Country: CN (occurrence: CN)
  Receive Date: 20171011
  Receipt Date: 20181205
  Transmission Date: 20190204
  Serious: Yes (Death)
  Sender: FDA-Public Use
  Company Number: CN-ROCHE-2005758

PATIENT
  Age: 51 Year
  Sex: Male
  Weight: 42 kg

DRUGS (26)
  1. RED BLOOD CELLS [Concomitant]
     Active Substance: HUMAN RED BLOOD CELL
     Dosage: RH POSITIVE O - TYPE SUSPENDED?1.5 UNITS
     Route: 042
     Dates: start: 20170922, end: 20170922
  2. POTASSIUM CITRATE. [Concomitant]
     Active Substance: POTASSIUM CITRATE
     Indication: HYPOKALAEMIA
     Route: 048
     Dates: start: 20170930, end: 20171006
  3. ETOPOSIDE. [Suspect]
     Active Substance: ETOPOSIDE
     Indication: SMALL CELL LUNG CANCER EXTENSIVE STAGE
     Dosage: DATE OF MOST RECENT DOSE (140MG) OF ETOPOSIDE PRIOR TO EVENT: 03/SEP/2017 AT 18:10
     Route: 042
     Dates: start: 20170810
  4. MORPHINE HYDROCHLORIDE [Concomitant]
     Active Substance: MORPHINE HYDROCHLORIDE
     Indication: ARTHRALGIA
     Route: 048
     Dates: start: 20170828, end: 20171006
  5. POTASSIUM CHLORIDE. [Concomitant]
     Active Substance: POTASSIUM CHLORIDE
     Indication: HYPOKALAEMIA
     Route: 042
     Dates: start: 20170912, end: 20170921
  6. RED BLOOD CELLS [Concomitant]
     Active Substance: HUMAN RED BLOOD CELL
     Indication: ANAEMIA
     Dosage: RH POSITIVE O - TYPE SUSPENDED?1.5 UNITS
     Route: 042
     Dates: start: 20170921, end: 20170921
  7. ATEZOLIZUMAB. [Suspect]
     Active Substance: ATEZOLIZUMAB
     Indication: SMALL CELL LUNG CANCER EXTENSIVE STAGE
     Dosage: DATE OF MOST RECENT DOSE OF BLINDED ATEZOLIZUMAB PRIOR TO EVENT: 01/SEP/2017 AT 14:30, 1200 MG
     Route: 042
     Dates: start: 20170810
  8. GLUTATHIONE [Concomitant]
     Active Substance: GLUTATHIONE
     Dosage: PROTECT LIVER
     Route: 042
     Dates: start: 20170901, end: 20170926
  9. MAGNESIUM SULFATE. [Concomitant]
     Active Substance: MAGNESIUM SULFATE
     Route: 042
     Dates: start: 20170930, end: 20171004
  10. VITAMIN C [Concomitant]
     Active Substance: ASCORBIC ACID
     Indication: HYPOMAGNESAEMIA
     Dosage: 2 GRAIN
     Route: 042
     Dates: start: 20170912, end: 20170921
  11. CARBOPLATIN. [Suspect]
     Active Substance: CARBOPLATIN
     Indication: SMALL CELL LUNG CANCER EXTENSIVE STAGE
     Dosage: ACHIEVE AN INITIAL TARGET AUC OF 5 MG/ML/MIN WILL BE ADMINISTERED ON DAY 1 OF EACH 21-DAY CYCLE DURI
     Route: 042
     Dates: start: 20170810
  12. MAGNESIUM SULFATE. [Concomitant]
     Active Substance: MAGNESIUM SULFATE
     Indication: HYPOMAGNESAEMIA
     Route: 042
     Dates: start: 20170912, end: 20170921
  13. HUMAN ALBUMIN [Concomitant]
     Active Substance: ALBUMIN HUMAN
     Indication: HYPOPROTEINAEMIA
     Dosage: 10 GRAIN
     Route: 042
     Dates: start: 20170913, end: 20170921
  14. KANGLAITE INJECTION [Concomitant]
     Dosage: ANTITUMOR THERAPY
     Route: 042
     Dates: start: 20170921, end: 20171006
  15. DOXOFYLLINE [Concomitant]
     Active Substance: DOXOFYLLINE
     Indication: COUGH
     Route: 042
     Dates: start: 20170923, end: 20171006
  16. DOXOFYLLINE [Concomitant]
     Active Substance: DOXOFYLLINE
     Indication: PRODUCTIVE COUGH
  17. CALCIUM GLUCONATE. [Concomitant]
     Active Substance: CALCIUM GLUCONATE
     Route: 042
     Dates: start: 20170924, end: 20170930
  18. LANSOPRAZOLE. [Concomitant]
     Active Substance: LANSOPRAZOLE
     Indication: STRESS ULCER
     Route: 042
     Dates: start: 20170911, end: 20171004
  19. SODIUM CHLORIDE. [Concomitant]
     Active Substance: SODIUM CHLORIDE
     Indication: HYPONATRAEMIA
     Route: 042
     Dates: start: 20170829, end: 20171004
  20. POTASSIUM CHLORIDE. [Concomitant]
     Active Substance: POTASSIUM CHLORIDE
     Route: 042
     Dates: start: 20170930, end: 20171004
  21. BUCINNAZINE [Concomitant]
     Active Substance: BUCINNAZINE
     Indication: ARTHRALGIA
     Route: 030
     Dates: start: 20170914, end: 20170914
  22. AMBROXOL HYDROCHLORIDE [Concomitant]
     Active Substance: AMBROXOL HYDROCHLORIDE
     Indication: COUGH
     Route: 042
     Dates: start: 20170923, end: 20171006
  23. AMBROXOL HYDROCHLORIDE [Concomitant]
     Active Substance: AMBROXOL HYDROCHLORIDE
     Indication: PRODUCTIVE COUGH
     Dosage: IH (INHALED)
     Route: 065
     Dates: start: 20170929, end: 20171006
  24. COMPOUND AMINO ACID 18AA [Concomitant]
     Indication: HYPOPHOSPHATAEMIA
     Route: 042
     Dates: start: 20170930, end: 20171004
  25. SODIUM CHLORIDE. [Concomitant]
     Active Substance: SODIUM CHLORIDE
     Route: 042
     Dates: start: 20170912, end: 20170921
  26. HUMAN ALBUMIN [Concomitant]
     Active Substance: ALBUMIN HUMAN
     Route: 042
     Dates: start: 20170930, end: 20171006

REACTIONS (1)
  - Death [Fatal]

NARRATIVE: CASE EVENT DATE: 20171006
